FAERS Safety Report 14377836 (Version 1)
Quarter: 2018Q1

REPORT INFORMATION
  Report Type: Report from Study
  Country: US (occurrence: US)
  Receive Date: 20180111
  Receipt Date: 20180111
  Transmission Date: 20180509
  Serious: Yes (Death, Hospitalization)
  Sender: FDA-Public Use
  Company Number: US-VIFOR (INTERNATIONAL) INC.-VIT-2017-10751

PATIENT
  Age: 63 Year
  Sex: Female

DRUGS (2)
  1. VELTASSA [Suspect]
     Active Substance: PATIROMER
     Indication: PRODUCT USED FOR UNKNOWN INDICATION
     Dates: start: 201707
  2. VELTASSA [Suspect]
     Active Substance: PATIROMER
     Dates: start: 2017

REACTIONS (3)
  - Death [Fatal]
  - Off label use [Unknown]
  - Blister [Unknown]

NARRATIVE: CASE EVENT DATE: 2017
